FAERS Safety Report 6199269-5 (Version None)
Quarter: 2009Q2

REPORT INFORMATION
  Report Type: 
  Country: None (occurrence: None)
  Receive Date: 20090519
  Receipt Date: 20090507
  Transmission Date: 20091009
  Serious: Yes (Death, Hospitalization, Disabling)
  Sender: FDA-Public Use
  Company Number: 1-18259937

PATIENT
  Age: 69 Year
  Sex: Male
  Weight: 99.7913 kg

DRUGS (11)
  1. WARFARIN SODIUM [Suspect]
     Indication: ATRIAL FIBRILLATION
     Dosage: 2.5 MG ONCE DAILY, ORAL
     Route: 048
     Dates: start: 20020722, end: 20081110
  2. VICODIN (HYDROCODONE AND ACETAMINOPHEN) [Concomitant]
  3. CHERATUSSIN AC (GUAIFENESIN) [Concomitant]
  4. ACETAMINOPHEN AND HYDROCODONE BITARTRATE [Concomitant]
  5. DOCUSATE SODIUM [Concomitant]
  6. KEPPRA [Concomitant]
  7. VITAMIN D [Concomitant]
  8. MULTI-VITAMIN [Concomitant]
  9. LISINOPRIL [Concomitant]
  10. LOVASTATIN [Concomitant]
  11. SIMVASTATIN [Concomitant]

REACTIONS (5)
  - BRAIN INJURY [None]
  - CEREBRAL HAEMORRHAGE [None]
  - METASTASES TO CENTRAL NERVOUS SYSTEM [None]
  - METASTASES TO LUNG [None]
  - METASTATIC MALIGNANT MELANOMA [None]
